FAERS Safety Report 4520196-0 (Version None)
Quarter: 2004Q4

REPORT INFORMATION
  Report Type: 
  Country: None (occurrence: None)
  Receive Date: 20041025
  Receipt Date: 20040325
  Transmission Date: 20050328
  Serious: Yes (Hospitalization)
  Sender: FDA-Public Use
  Company Number: 2004-BP-02406BP

PATIENT
  Age: 62 Year
  Sex: Female

DRUGS (3)
  1. COMBIVENT [Suspect]
     Indication: CHRONIC OBSTRUCTIVE AIRWAYS DISEASE
     Dosage: 8 PUF (SEE TEXT, 2 PUFFS QID), IH
     Route: 055
     Dates: start: 20020101
  2. PREDNISONE [Concomitant]
  3. DUONEB [Concomitant]

REACTIONS (1)
  - BRONCHOSPASM [None]
